FAERS Safety Report 4997732-3 (Version None)
Quarter: 2006Q1

REPORT INFORMATION
  Report Type: 
  Country: None (occurrence: None)
  Receive Date: 20060315
  Receipt Date: 20060127
  Transmission Date: 20060701
  Serious: Yes (Other)
  Sender: FDA-Public Use
  Company Number: 434277

PATIENT
  Age: 47 Year
  Sex: Female
  Weight: 90.7 kg

DRUGS (6)
  1. BONIVA [Suspect]
     Indication: OSTEOPENIA
     Dosage: 150 MG  1 PER MONTH ORAL
     Route: 048
     Dates: start: 20051015
  2. HYDROCHLOROTHIAZIDE [Concomitant]
  3. LEVOTHYROXINE SODIUM [Concomitant]
  4. FEMARA [Concomitant]
  5. HUMULIN (BIPHASIC ISOPHANE INSULIN) [Concomitant]
  6. LANTUS [Concomitant]

REACTIONS (1)
  - BLOOD GLUCOSE INCREASED [None]
